FAERS Safety Report 23427826 (Version 1)
Quarter: 2024Q1

REPORT INFORMATION
  Report Type: Spontaneous
  Country: US (occurrence: US)
  Receive Date: 20240122
  Receipt Date: 20240122
  Transmission Date: 20240409
  Serious: Yes (Other)
  Sender: FDA-Public Use
  Company Number: US-TEVA-VS-3134246

PATIENT
  Age: 18 Year

DRUGS (5)
  1. AMOXICILLIN\CLAVULANIC ACID [Suspect]
     Active Substance: AMOXICILLIN\CLAVULANIC ACID
     Indication: Hidradenitis
     Dosage: RECEIVED MULTIPLE COURSES
     Route: 065
  2. CLINDAMYCIN [Suspect]
     Active Substance: CLINDAMYCIN
     Indication: Hidradenitis
     Route: 065
  3. TRIAMCINOLONE [Suspect]
     Active Substance: TRIAMCINOLONE
     Indication: Hidradenitis
     Dosage: RECEIVED 0.5 ML OF 20 MG/ML AROUND THE RIGHT PERIAREOLAR SINUS TRACT
     Route: 026
  4. RIFAMPIN [Suspect]
     Active Substance: RIFAMPIN
     Indication: Hidradenitis
     Route: 065
  5. SPIRONOLACTONE [Concomitant]
     Active Substance: SPIRONOLACTONE
     Indication: Hidradenitis
     Route: 065

REACTIONS (1)
  - Drug ineffective [Unknown]
